FAERS Safety Report 6429717-4 (Version None)
Quarter: 2009Q4

REPORT INFORMATION
  Report Type: 
  Country: None (occurrence: None)
  Receive Date: 20091106
  Receipt Date: 20091029
  Transmission Date: 20100525
  Serious: Yes (Hospitalization)
  Sender: FDA-Public Use
  Company Number: US-BIOGENIDEC-2009BI035363

PATIENT
  Age: 58 Year
  Sex: Female

DRUGS (2)
  1. AVONEX [Suspect]
     Indication: MULTIPLE SCLEROSIS
     Route: 030
     Dates: start: 20070901
  2. AVONEX [Suspect]
     Route: 030

REACTIONS (5)
  - BACK PAIN [None]
  - BACTERIAL INFECTION [None]
  - BLOOD GLUCOSE INCREASED [None]
  - FALL [None]
  - MULTIPLE SCLEROSIS RELAPSE [None]
